FAERS Safety Report 20997342 (Version 1)
Quarter: 2022Q2

REPORT INFORMATION
  Report Type: Spontaneous
  Country: BR (occurrence: BR)
  Receive Date: 20220623
  Receipt Date: 20220623
  Transmission Date: 20220720
  Serious: Yes (Hospitalization)
  Sender: FDA-Public Use
  Company Number: BR-STRIDES ARCOLAB LIMITED-2022SP007655

PATIENT
  Sex: Male
  Weight: 2.819 kg

DRUGS (2)
  1. AMPICILLIN TRIHYDRATE [Suspect]
     Active Substance: AMPICILLIN TRIHYDRATE
     Indication: Antibiotic therapy
     Dosage: 500 MILLIGRAM
     Route: 065
  2. GENTAMICIN [Suspect]
     Active Substance: GENTAMICIN
     Indication: Antibiotic therapy
     Dosage: 20 MILLIGRAM
     Route: 065

REACTIONS (8)
  - Macrocytosis [Unknown]
  - Anisocytosis [Unknown]
  - Leukocytosis [Unknown]
  - Monocytosis [Unknown]
  - Lymphocytosis [Unknown]
  - Metabolic acidosis [Unknown]
  - Red blood cell hyperchromic morphology [Unknown]
  - Eosinophilia [Unknown]
